FAERS Safety Report 4867182-9 (Version None)
Quarter: 2005Q4

REPORT INFORMATION
  Report Type: 
  Country: None (occurrence: None)
  Receive Date: 20051228
  Receipt Date: 20051228
  Transmission Date: 20060501
  Serious: Yes (Life-Threatening)
  Sender: FDA-Public Use
  Company Number: None

PATIENT
  Age: 29 Year
  Sex: Female
  Weight: 60.782 kg

DRUGS (2)
  1. MIFEPREX [Suspect]
     Indication: ABORTION INDUCED
     Dosage: 2 PILLS ONCE PO
     Route: 048
     Dates: start: 20051125, end: 20051125
  2. CYTOTEC [Suspect]
     Indication: ABORTION INDUCED
     Dosage: 4 SUPPOSITORIES ONCE  VAG
     Route: 067

REACTIONS (5)
  - ASTHENIA [None]
  - FATIGUE [None]
  - FEELING COLD [None]
  - REFUSAL OF TREATMENT BY PATIENT [None]
  - VAGINAL HAEMORRHAGE [None]
